FAERS Safety Report 8305489-3 (Version None)
Quarter: 2012Q2

REPORT INFORMATION
  Report Type: 
  Country: None (occurrence: None)
  Receive Date: 20120423
  Receipt Date: 20120416
  Transmission Date: 20120825
  Serious: Yes (Hospitalization)
  Sender: FDA-Public Use
  Company Number: US-GLAXOSMITHKLINE-A0971385A

PATIENT
  Age: 44 Year
  Sex: Female
  Weight: 46.4 kg

DRUGS (1)
  1. FLOLAN [Suspect]
     Indication: ESSENTIAL HYPERTENSION
     Dates: start: 19991101

REACTIONS (1)
  - DEVICE OCCLUSION [None]
